FAERS Safety Report 21130597 (Version 2)
Quarter: 2022Q3

REPORT INFORMATION
  Report Type: Spontaneous
  Country: GB (occurrence: GB)
  Receive Date: 20220726
  Receipt Date: 20220811
  Transmission Date: 20221027
  Serious: Yes (Life-Threatening, Hospitalization)
  Sender: FDA-Public Use
  Company Number: GB-TEVA-2022-GB-2058265

PATIENT
  Age: 25 Year
  Sex: Male

DRUGS (5)
  1. COLCHICINE [Suspect]
     Active Substance: COLCHICINE
     Indication: Product used for unknown indication
     Route: 048
  2. CHARCOAL ACTIVATED [Suspect]
     Active Substance: ACTIVATED CHARCOAL
     Indication: Toxicity to various agents
     Dosage: MULTIPLE DOSES
     Route: 065
  3. SODIUM BICARBONATE [Suspect]
     Active Substance: SODIUM BICARBONATE
     Indication: Pancytopenia
     Route: 065
  4. VITAMIN K [Suspect]
     Active Substance: PHYTONADIONE
     Indication: Pancytopenia
     Route: 065
  5. FILGRASTIM [Suspect]
     Active Substance: FILGRASTIM
     Indication: Pancytopenia
     Route: 065

REACTIONS (12)
  - Vomiting [Unknown]
  - Abdominal pain [Unknown]
  - Myelosuppression [Recovering/Resolving]
  - Rhabdomyolysis [Unknown]
  - Alopecia [Unknown]
  - Pneumonia bacterial [Unknown]
  - Pneumonia fungal [Unknown]
  - Pancytopenia [Unknown]
  - Pneumothorax [Unknown]
  - Intentional overdose [Unknown]
  - Toxicity to various agents [Unknown]
  - Drug ineffective [Unknown]
